FAERS Safety Report 18294372 (Version 1)
Quarter: 2020Q3

REPORT INFORMATION
  Report Type: Spontaneous
  Country: US (occurrence: US)
  Receive Date: 20200921
  Receipt Date: 20200921
  Transmission Date: 20201103
  Serious: No
  Sender: FDA-Public Use
  Company Number: None

PATIENT
  Age: 61 Year
  Sex: Male

DRUGS (3)
  1. TACROLIMUS. [Concomitant]
     Active Substance: TACROLIMUS
  2. SIROLIMUS 1MG [Suspect]
     Active Substance: SIROLIMUS
  3. SIROLIMUS 0.5MG [Suspect]
     Active Substance: SIROLIMUS
     Route: 048
     Dates: start: 20200921

REACTIONS (1)
  - Hypersensitivity [None]

NARRATIVE: CASE EVENT DATE: 20200921
